FAERS Safety Report 6313773-8 (Version None)
Quarter: 2009Q3

REPORT INFORMATION
  Report Type: 
  Country: None (occurrence: None)
  Receive Date: 20090818
  Receipt Date: 20081114
  Transmission Date: 20100115
  Serious: No
  Sender: FDA-Public Use
  Company Number: US-BRISTOL-MYERS SQUIBB COMPANY-14407712

PATIENT
  Age: 24 Year
  Sex: Male
  Weight: 86 kg

DRUGS (4)
  1. REYATAZ [Suspect]
     Indication: HIV INFECTION
     Dates: start: 20070801
  2. NORVIR [Suspect]
  3. TRUVADA [Suspect]
  4. LEXAPRO [Suspect]

REACTIONS (1)
  - DRUG SCREEN FALSE POSITIVE [None]
